FAERS Safety Report 4372248-6 (Version None)
Quarter: 2004Q2

REPORT INFORMATION
  Report Type: 
  Country: None (occurrence: None)
  Receive Date: 20040602
  Receipt Date: 20040524
  Transmission Date: 20050107
  Serious: Yes (Hospitalization)
  Sender: FDA-Public Use
  Company Number: DE-JNJFOC-20040505707

PATIENT
  Sex: Female

DRUGS (1)
  1. REMICADE [Suspect]
     Indication: RHEUMATOID ARTHRITIS
     Dosage: CUMULATIVE DOSE 1500 MG
     Dates: start: 20031201

REACTIONS (2)
  - LUMBAR VERTEBRAL FRACTURE [None]
  - OSTEOPOROTIC FRACTURE [None]
